FAERS Safety Report 4735582-3 (Version None)
Quarter: 2005Q3

REPORT INFORMATION
  Report Type: 
  Country: None (occurrence: None)
  Receive Date: 20050803
  Receipt Date: 20050708
  Transmission Date: 20060218
  Serious: Yes (Disabling, Other)
  Sender: FDA-Public Use
  Company Number: USA0507102316

PATIENT
  Age: 52 Year
  Sex: Female

DRUGS (2)
  1. HUMULIN N [Suspect]
     Dosage: 15 U AT BEDTIME
     Dates: start: 20020101
  2. HUMULIN R [Suspect]
     Dates: start: 20020101

REACTIONS (2)
  - BLOOD GLUCOSE INCREASED [None]
  - RETINAL DETACHMENT [None]
